FAERS Safety Report 7341424-2 (Version None)
Quarter: 2011Q1

REPORT INFORMATION
  Report Type: 
  Country: None (occurrence: None)
  Receive Date: 20110309
  Receipt Date: 20110304
  Transmission Date: 20110831
  Serious: Yes (Death, Hospitalization, Disabling, Other)
  Sender: FDA-Public Use
  Company Number: GB-MERCK-1101GBR00119

PATIENT
  Age: 44 Year
  Sex: Female

DRUGS (4)
  1. NEVIRAPINE [Concomitant]
     Indication: HIV INFECTION
     Route: 065
     Dates: start: 20091230, end: 20100114
  2. ISENTRESS [Suspect]
     Indication: HIV INFECTION
     Route: 048
     Dates: start: 20110104, end: 20110115
  3. EMTRICITABINE AND TENOFOVIR DISOPROXIL FUMARATE [Concomitant]
     Indication: HIV INFECTION
     Route: 065
     Dates: start: 20091230, end: 20100114
  4. NEVIRAPINE [Concomitant]
     Route: 065
     Dates: start: 20100114

REACTIONS (4)
  - PULMONARY FUNCTION TEST DECREASED [None]
  - ALANINE AMINOTRANSFERASE INCREASED [None]
  - PNEUMONIA [None]
  - IDIOPATHIC PULMONARY FIBROSIS [None]
